FAERS Safety Report 8846748 (Version 1)
Quarter: 2012Q4

REPORT INFORMATION
  Report Type: 
  Country: US (occurrence: US)
  Receive Date: 20121017
  Receipt Date: 20121017
  Transmission Date: 20130627
  Serious: No
  Sender: FDA-Public Use
  Company Number: US-ASTRAZENECA-2012SE77246

PATIENT
  Age: 70 Year
  Sex: Female
  Weight: 72.6 kg

DRUGS (1)
  1. TOPROL XL [Suspect]
     Indication: HEART RATE IRREGULAR
     Route: 048
     Dates: start: 2004

REACTIONS (4)
  - Body height decreased [Unknown]
  - Blood calcium increased [Unknown]
  - Osteopenia [Unknown]
  - Off label use [Unknown]
